FAERS Safety Report 10172536 (Version 1)
Quarter: 2014Q2

REPORT INFORMATION
  Report Type: Spontaneous
  Country: CN (occurrence: CN)
  Receive Date: 20140515
  Receipt Date: 20140515
  Transmission Date: 20141212
  Serious: Yes (Life-Threatening, Other)
  Sender: FDA-Public Use
  Company Number: CN-ASTRAZENECA-2014SE32153

PATIENT
  Age: 19507 Day
  Sex: Female
  Weight: 60 kg

DRUGS (2)
  1. ESOMEPRAZOLE MAGNESIUM [Suspect]
     Indication: GASTRITIS EROSIVE
     Route: 048
     Dates: start: 20130108, end: 20130108
  2. ESOMEPRAZOLE SODIUM [Suspect]
     Indication: GASTRITIS EROSIVE
     Route: 040
     Dates: start: 20130108, end: 20130108

REACTIONS (6)
  - Defaecation urgency [Unknown]
  - Pain [Unknown]
  - Anaphylactic shock [Recovering/Resolving]
  - Abdominal pain [Unknown]
  - Nausea [Unknown]
  - Vomiting [Unknown]
